FAERS Safety Report 22086300 (Version 2)
Quarter: 2023Q2

REPORT INFORMATION
  Report Type: Other
  Country: CN (occurrence: CN)
  Receive Date: 20230310
  Receipt Date: 20230412
  Transmission Date: 20230722
  Serious: Yes (Death)
  Sender: FDA-Public Use
  Company Number: CN-CSTONE PHARMACEUTICALS (SUZHOU) CO., LTD.-2023CN00209

PATIENT
  Age: 67 Year
  Sex: Male

DRUGS (1)
  1. AYVAKIT [Suspect]
     Active Substance: AVAPRITINIB
     Indication: Gastrointestinal stromal tumour
     Dosage: 150 MILLIGRAM, UNKNOWN
     Route: 048
     Dates: start: 20220929, end: 20230328

REACTIONS (7)
  - Death [Fatal]
  - Epistaxis [Not Recovered/Not Resolved]
  - White blood cell count increased [Not Recovered/Not Resolved]
  - Diarrhoea [Not Recovered/Not Resolved]
  - Asthenia [Not Recovered/Not Resolved]
  - Face oedema [Not Recovered/Not Resolved]
  - Oedema peripheral [Not Recovered/Not Resolved]

NARRATIVE: CASE EVENT DATE: 20221020
